FAERS Safety Report 16947752 (Version 4)
Quarter: 2019Q4

REPORT INFORMATION
  Report Type: Spontaneous
  Country: US (occurrence: US)
  Receive Date: 20191022
  Receipt Date: 20191212
  Transmission Date: 20200122
  Serious: Yes (Hospitalization, Other)
  Sender: FDA-Public Use
  Company Number: US-ACTELION-A-US2019-197156

PATIENT
  Sex: Female
  Weight: 95.24 kg

DRUGS (3)
  1. BOSENTAN. [Concomitant]
     Active Substance: BOSENTAN
  2. UPTRAVI [Suspect]
     Active Substance: SELEXIPAG
     Indication: PULMONARY ARTERIAL HYPERTENSION
     Dosage: 1600 MCG, BID
     Route: 048
     Dates: start: 201703
  3. WARFARIN [Concomitant]
     Active Substance: WARFARIN

REACTIONS (4)
  - Atrial fibrillation [Unknown]
  - Arrhythmia [Unknown]
  - Tachycardia [Unknown]
  - Eye disorder [Unknown]
